FAERS Safety Report 8266884 (Version 5)
Quarter: 2019Q3

REPORT INFORMATION
  Report Type: Report from Study
  Country: PL (occurrence: PL)
  Receive Date: 20111129
  Receipt Date: 20190725
  Transmission Date: 20191005
  Serious: Yes (Death, Hospitalization)
  Sender: FDA-Public Use
  Company Number: PL-UCBSA-046072

PATIENT
  Age: 67 Year
  Sex: Female
  Weight: 92 kg

DRUGS (9)
  1. CERTOLIZUMAB PEGOL VS PLACEBO [Suspect]
     Active Substance: CERTOLIZUMAB PEGOL
     Dosage: 400 MILLIGRAM
     Route: 058
     Dates: start: 20101207, end: 20110524
  2. POLPRAZOL [Concomitant]
     Active Substance: OMEPRAZOLE
     Indication: GASTRIC ULCER
     Dosage: 20 MG, ONCE DAILY (QD)
     Route: 048
     Dates: start: 20100329, end: 201201
  3. ACIDUM FOLICUM [Concomitant]
     Active Substance: FOLIC ACID
     Indication: UNEVALUABLE EVENT
     Dosage: 5 MG QS
     Route: 048
     Dates: start: 20061002, end: 201201
  4. BISOCARD [Concomitant]
     Active Substance: BISOPROLOL
     Indication: HYPERTENSION
     Dosage: 5 MG, ONCE DAILY (QD)
     Route: 048
     Dates: start: 20100329, end: 201201
  5. CERTOLIZUMAB PEGOL VS PLACEBO [Suspect]
     Active Substance: CERTOLIZUMAB PEGOL
     Indication: PSORIATIC ARTHROPATHY
     Route: 058
     Dates: start: 20110524, end: 20111117
  6. POLPRIL [Concomitant]
     Active Substance: RAMIPRIL
     Indication: HYPERTENSION
     Dosage: 10 MG, ONCE DAILY (QD)
     Route: 048
     Dates: start: 200808, end: 201201
  7. ELTROXIN [Concomitant]
     Active Substance: LEVOTHYROXINE
     Indication: HYPOTHYROIDISM
     Dosage: 75 ?G, ONCE DAILY (QD)
     Route: 048
     Dates: start: 200005, end: 201201
  8. DICLOFENAC [Concomitant]
     Active Substance: DICLOFENAC
     Indication: PSORIATIC ARTHROPATHY
     Dosage: 100 MG, ONCE DAILY (QD)
     Route: 048
     Dates: start: 20100329, end: 201201
  9. METHOTREXATE. [Concomitant]
     Active Substance: METHOTREXATE
     Indication: PSORIATIC ARTHROPATHY
     Dosage: 15 MG QS
     Route: 048
     Dates: start: 20100621, end: 201201

REACTIONS (1)
  - Breast cancer [Fatal]

NARRATIVE: CASE EVENT DATE: 201111
